FAERS Safety Report 23219834 (Version 1)
Quarter: 2023Q4

REPORT INFORMATION
  Report Type: Spontaneous
  Country: US (occurrence: US)
  Receive Date: 20231122
  Receipt Date: 20231122
  Transmission Date: 20240109
  Serious: No
  Sender: FDA-Public Use
  Company Number: US-AVADEL CNS PHARMACEUTICALS, LLC-2023AVA00101

PATIENT
  Sex: Female
  Weight: 76.19 kg

DRUGS (10)
  1. LUMRYZ [Suspect]
     Active Substance: SODIUM OXYBATE
     Indication: Narcolepsy
     Dosage: 4.5 G, 1X/DAY
     Dates: start: 20230826, end: 20230826
  2. LUMRYZ [Suspect]
     Active Substance: SODIUM OXYBATE
     Indication: Cataplexy
     Dosage: 4.5 G, ONCE NIGHTLY
  3. APPLE CIDER VINEGAR [MALUS SPP. VINEGAR EXTRACT] [Concomitant]
  4. FISH OIL\OMEGA-3 FATTY ACIDS [Concomitant]
     Active Substance: FISH OIL\OMEGA-3 FATTY ACIDS
  5. MINERALS\VITAMINS [Concomitant]
     Active Substance: MINERALS\VITAMINS
  6. DIGESTIVE ENZYMES [AMYLASE;BETAINE HYDROCHLORIDE;BROMELAINS;PAPAIN] [Concomitant]
  7. METABOLISM BOOST EXTRACT WITH APPLE CIDER VINEGAR [Concomitant]
  8. PREBIOTICS NOS;PROBIOTICS NOS [Concomitant]
  9. MELATONIN [Concomitant]
     Active Substance: MELATONIN
  10. UNSPECIFIED ESSENTIAL OILS IN A CAPSULE [Concomitant]

REACTIONS (5)
  - Retching [Recovered/Resolved]
  - Dysgeusia [Not Recovered/Not Resolved]
  - Feeling abnormal [Recovered/Resolved]
  - Nausea [Unknown]
  - Intentional dose omission [Not Recovered/Not Resolved]

NARRATIVE: CASE EVENT DATE: 20230101
